FAERS Safety Report 9330092 (Version 2)
Quarter: 2013Q3

REPORT INFORMATION
  Report Type: Spontaneous
  Country: FR (occurrence: FR)
  Receive Date: 20130604
  Receipt Date: 20130716
  Transmission Date: 20140515
  Serious: Yes (Death, Other)
  Sender: FDA-Public Use
  Company Number: FR-PFIZER INC-2013166831

PATIENT
  Age: 77 Year
  Sex: Female

DRUGS (5)
  1. AMLOR [Suspect]
     Indication: HYPERTENSION
     Dosage: 5 MG (1 DF) DAILY, IN THE MORNING
     Dates: start: 20111001, end: 20111013
  2. LEVOTHYROX [Concomitant]
     Indication: POST PROCEDURAL HYPOTHYROIDISM
  3. TAMOXIFENE [Concomitant]
     Indication: NEOPLASM MALIGNANT
  4. SULFARLEM [Concomitant]
  5. PARACETAMOL [Concomitant]

REACTIONS (8)
  - Sepsis [Fatal]
  - Dermo-hypodermitis [Unknown]
  - Syncope [Unknown]
  - Tibia fracture [Unknown]
  - Fall [Unknown]
  - Malaise [Unknown]
  - Hypotension [Unknown]
  - Vertigo [Not Recovered/Not Resolved]
